FAERS Safety Report 5403750-3 (Version None)
Quarter: 2007Q3

REPORT INFORMATION
  Report Type: 
  Country: None (occurrence: None)
  Receive Date: 20070802
  Receipt Date: 20070720
  Transmission Date: 20080115
  Serious: Yes (Life-Threatening)
  Sender: FDA-Public Use
  Company Number: JP-BRACCO-BRO-011890

PATIENT
  Age: 79 Year
  Sex: Female

DRUGS (1)
  1. IOPAMIRON [Suspect]
     Route: 042
     Dates: start: 20070713, end: 20070713

REACTIONS (4)
  - BLOOD PRESSURE DECREASED [None]
  - ELECTROCARDIOGRAM QRS COMPLEX PROLONGED [None]
  - ELECTROCARDIOGRAM ST SEGMENT ELEVATION [None]
  - FEELING ABNORMAL [None]
